FAERS Safety Report 8320715-2 (Version None)
Quarter: 2012Q2

REPORT INFORMATION
  Report Type: 
  Country: None (occurrence: None)
  Receive Date: 20120430
  Receipt Date: 20120426
  Transmission Date: 20120825
  Serious: No
  Sender: FDA-Public Use
  Company Number: JP-BAYER-2011-035251

PATIENT
  Age: 67 Year
  Sex: Female
  Weight: 65 kg

DRUGS (7)
  1. MIRIPLATIN [Concomitant]
     Indication: THERAPEUTIC EMBOLISATION
     Dosage: UNK
     Route: 013
  2. EPIRUBICIN HYDROCHLORIDE [Concomitant]
     Indication: THERAPEUTIC EMBOLISATION
     Dosage: UNK
     Route: 013
  3. LIVACT [Concomitant]
     Dosage: DAILY DOSE 12.75 G
     Route: 048
     Dates: start: 20091209
  4. LIPIODOL ULTRA-FLUIDE [Concomitant]
     Indication: THERAPEUTIC EMBOLISATION
     Dosage: UNK
     Route: 013
  5. MAGNESIUM SULFATE [Concomitant]
     Dosage: DAILY DOSE 990 MG
     Route: 048
     Dates: start: 20091209
  6. NOVORAPID [Concomitant]
     Dosage: DAILY DOSE 10 U
     Route: 058
     Dates: start: 20100125
  7. SORAFENIB (RAF KINASE INHIBITOR) [Suspect]
     Indication: HEPATIC NEOPLASM MALIGNANT
     Dosage: DAILY DOSE 400 MG
     Route: 048
     Dates: start: 20101124, end: 20101217

REACTIONS (5)
  - DYSPHONIA [None]
  - HYPERAMMONAEMIA [None]
  - PLATELET COUNT DECREASED [None]
  - HYPERTENSION [None]
  - PALMAR-PLANTAR ERYTHRODYSAESTHESIA SYNDROME [None]
